FAERS Safety Report 9123285 (Version 1)
Quarter: 2013Q1

REPORT INFORMATION
  Report Type: Spontaneous
  Country: US (occurrence: None)
  Receive Date: 20130226
  Receipt Date: 20130226
  Transmission Date: 20140127
  Serious: No
  Sender: FDA-Public Use
  Company Number: None

PATIENT
  Age: 35 Year
  Sex: Female
  Weight: 92.99 kg

DRUGS (1)
  1. MIRENA [Suspect]
     Indication: CONTRACEPTION
     Dosage: I DOSE 1 TIME VAG
     Route: 067
     Dates: start: 20111215, end: 20130218

REACTIONS (3)
  - Device dislocation [None]
  - Pain [None]
  - Muscle spasms [None]
